FAERS Safety Report 6527458-6 (Version None)
Quarter: 2010Q1

REPORT INFORMATION
  Report Type: 
  Country: None (occurrence: None)
  Receive Date: 20100105
  Receipt Date: 20091231
  Transmission Date: 20100710
  Serious: Yes (Congenital Anomaly, Other)
  Sender: FDA-Public Use
  Company Number: GB-WATSON-2009-11197

PATIENT

DRUGS (2)
  1. LAMOTRIGINE (WATSON LABORATORIES) [Suspect]
     Indication: EPILEPSY
     Dosage: 100 DF, DAILY
     Route: 064
  2. FOLIC ACID [Concomitant]
     Indication: DRUG USE FOR UNKNOWN INDICATION
     Dosage: 5 MG, DAILY TO TERM
     Route: 064

REACTIONS (1)
  - ASPERGER'S DISORDER [None]
